FAERS Safety Report 25719336 (Version 1)
Quarter: 2025Q3

REPORT INFORMATION
  Report Type: Spontaneous
  Country: EU (occurrence: None)
  Receive Date: 20250824
  Receipt Date: 20250824
  Transmission Date: 20251020
  Serious: Yes (Death)
  Sender: ALEXION PHARMACEUTICALS
  Company Number: None

PATIENT
  Age: 79 Year
  Sex: Male
  Weight: 67 kg

DRUGS (2)
  1. FASENRA [Suspect]
     Active Substance: BENRALIZUMAB
     Dosage: 1 DOSAGE FORM, Q8W
     Dates: start: 20220829
  2. FASENRA [Suspect]
     Active Substance: BENRALIZUMAB

REACTIONS (3)
  - Respiratory distress [Fatal]
  - Asthma [Fatal]
  - Infection [Fatal]

NARRATIVE: CASE EVENT DATE: 20250317
